FAERS Safety Report 9483705 (Version 3)
Quarter: 2013Q4

REPORT INFORMATION
  Report Type: Spontaneous
  Country: US (occurrence: US)
  Receive Date: 20130828
  Receipt Date: 20131014
  Transmission Date: 20140711
  Serious: Yes (Other)
  Sender: FDA-Public Use
  Company Number: US-UCBSA-095976

PATIENT
  Age: 66 Year
  Sex: Female

DRUGS (7)
  1. CIMZIA [Suspect]
     Indication: CROHN^S DISEASE
     Dosage: NO OF DOSES :2
     Route: 058
  2. CLONAZEPAM [Concomitant]
  3. FOLIC ACID [Concomitant]
  4. LORTAB [Concomitant]
  5. METHOTREXATE [Concomitant]
  6. METOPROLOL [Concomitant]
  7. NIFEDIPINE [Concomitant]

REACTIONS (1)
  - Breast cancer [Not Recovered/Not Resolved]
